FAERS Safety Report 6706523-4 (Version None)
Quarter: 2010Q2

REPORT INFORMATION
  Report Type: 
  Country: None (occurrence: None)
  Receive Date: 20100503
  Receipt Date: 20100427
  Transmission Date: 20101027
  Serious: Yes (Death, Hospitalization, Other)
  Sender: FDA-Public Use
  Company Number: PHEH2009US13165

PATIENT
  Sex: Male

DRUGS (11)
  1. EXJADE [Suspect]
     Indication: IRON OVERLOAD
     Dosage: 1500 MG DAILY
     Route: 048
     Dates: start: 20080601
  2. XOPENEX [Concomitant]
     Dosage: Q6H
     Dates: start: 20090708
  3. PROVENTIL [Concomitant]
     Dosage: 2.5 MG, Q4H
     Dates: start: 20090708
  4. ATROVENT [Concomitant]
     Dosage: 0.5 MG, Q2H
     Dates: start: 20090708
  5. CEFEPIME [Concomitant]
     Dosage: 2 GM, 40 ML/HR OVER 30 MIN
     Route: 042
     Dates: start: 20090707
  6. VANCOMYCIN [Concomitant]
     Dosage: 2GM, 130 ML/HR OVER 120 MIN
     Dates: start: 20090707
  7. AMARYL [Concomitant]
     Dosage: 2 G, Q AM MEAL START
     Route: 048
     Dates: start: 20090707
  8. METOPROLOL [Concomitant]
     Dosage: 25 MG, Q6H
     Route: 048
     Dates: start: 20090706
  9. PROTONIX [Concomitant]
     Dosage: 40 MG DAILY
     Route: 048
  10. NORVASC [Concomitant]
     Dosage: 5 MG, QD
     Route: 048
  11. AMLODIPINE [Concomitant]

REACTIONS (19)
  - ALANINE AMINOTRANSFERASE INCREASED [None]
  - BILIRUBIN CONJUGATED INCREASED [None]
  - BLOOD ALBUMIN DECREASED [None]
  - BLOOD BILIRUBIN INCREASED [None]
  - BLOOD GLUCOSE DECREASED [None]
  - BLOOD MAGNESIUM INCREASED [None]
  - BLOOD URINE PRESENT [None]
  - BONE MARROW FAILURE [None]
  - CARDIOMEGALY [None]
  - DEATH [None]
  - FUNGAL INFECTION [None]
  - FUNGAL SEPSIS [None]
  - HYPOXIA [None]
  - PANCYTOPENIA [None]
  - PLEURAL EFFUSION [None]
  - PROTEIN TOTAL DECREASED [None]
  - PYREXIA [None]
  - RESPIRATORY DISTRESS [None]
  - RESPIRATORY FAILURE [None]
